FAERS Safety Report 22033297 (Version 1)
Quarter: 2023Q1

REPORT INFORMATION
  Report Type: Spontaneous
  Country: NL (occurrence: NL)
  Receive Date: 20230224
  Receipt Date: 20230224
  Transmission Date: 20230417
  Serious: Yes (Other)
  Sender: FDA-Public Use
  Company Number: NL-LRB-00864572

PATIENT
  Sex: Female
  Weight: 58.5 kg

DRUGS (2)
  1. TRAMADOL [Suspect]
     Active Substance: TRAMADOL
     Indication: Pain in extremity
     Dosage: 1 DOSAGE FORM
     Route: 065
     Dates: start: 20230129, end: 20230130
  2. OXAZEPAM [Suspect]
     Active Substance: OXAZEPAM
     Indication: Pain in extremity
     Dosage: 1 DOSAGE FORM
     Route: 065
     Dates: start: 20230128

REACTIONS (5)
  - Hallucination [Recovered/Resolved]
  - Confusional state [Unknown]
  - Dizziness [Unknown]
  - Nausea [Unknown]
  - Palpitations [Unknown]
